FAERS Safety Report 8251112-6 (Version None)
Quarter: 2012Q2

REPORT INFORMATION
  Report Type: 
  Country: None (occurrence: None)
  Receive Date: 20120402
  Receipt Date: 20120328
  Transmission Date: 20120825
  Serious: Yes (Death)
  Sender: FDA-Public Use
  Company Number: AU-PFIZER INC-2012058503

PATIENT
  Age: 80 Year
  Sex: Male
  Weight: 72 kg

DRUGS (20)
  1. PERINDOPRIL ERBUMINE [Concomitant]
     Dosage: 5 MG, IN THE MORNING
     Route: 048
  2. TEMAZEPAM [Concomitant]
     Indication: INSOMNIA
     Dosage: 10 MG
     Route: 048
  3. LYRICA [Suspect]
     Indication: NEURALGIA
     Dosage: 75 MG, 2X/DAY
     Route: 048
     Dates: start: 20110922, end: 20111006
  4. LANTUS [Concomitant]
     Dosage: 22 IU IN THE MORNING
     Route: 058
  5. INSULIN [Concomitant]
     Dosage: 1 TO 15 UNIT, 3X/DAY
     Route: 058
  6. ERGOCALCIFEROL [Concomitant]
     Dosage: 25 MG, IN THE MORNING
     Route: 048
  7. PARACETAMOL [Concomitant]
     Indication: PAIN
     Dosage: 1 G, 3X/DAY
     Route: 048
  8. OXYCODONE HCL [Concomitant]
     Indication: PAIN
     Dosage: 5 MG, AT NIGHT
     Route: 048
     Dates: end: 20111122
  9. HYDROZOLE [Concomitant]
     Indication: RASH
     Dosage: UNK
  10. ACTILAX [Concomitant]
     Indication: CONSTIPATION
     Dosage: 20 ML
     Route: 048
  11. WARFARIN [Concomitant]
     Dosage: AT NIGHT
     Route: 048
  12. COLOXYL WITH SENNA [Concomitant]
     Indication: CONSTIPATION
     Dosage: 1 DF, 2X/DAY
     Route: 048
  13. CILAMOX [Concomitant]
     Dosage: 0.25 G, 3X/DAY
     Route: 048
  14. BICOR [Concomitant]
     Dosage: 10 MG, IN THE MORNING
     Route: 048
  15. CRESTOR [Concomitant]
     Dosage: 5 MG, AT NIGHT
     Route: 048
     Dates: end: 20111006
  16. OXYCONTIN [Concomitant]
     Dosage: 10 MG, 2X/DAY
     Route: 048
  17. PLAVIX [Concomitant]
     Dosage: 75 MG, IN THE MORNING
     Route: 048
     Dates: end: 20111219
  18. TEGRETOL [Concomitant]
     Dosage: 100 MG
     Route: 048
  19. FRUSEMIDE [Concomitant]
     Dosage: 40 MG
     Route: 048
     Dates: end: 20111012
  20. XALATAN [Concomitant]
     Dosage: ONE DROP IN BOTH EYES AT NIGHT

REACTIONS (3)
  - DEATH [None]
  - JOINT SWELLING [None]
  - OEDEMA PERIPHERAL [None]
